FAERS Safety Report 12608047 (Version 4)
Quarter: 2016Q4

REPORT INFORMATION
  Report Type: Other
  Country: GB (occurrence: GB)
  Receive Date: 20160729
  Receipt Date: 20161014
  Transmission Date: 20170207
  Serious: Yes (Disabling, Other)
  Sender: FDA-Public Use
  Company Number: GB-TAKEDA-2016TJP015894

PATIENT
  Age: 70 Year
  Sex: Female

DRUGS (4)
  1. TAMOXIFEN CITRATE. [Suspect]
     Active Substance: TAMOXIFEN CITRATE
     Indication: NEOPLASM PROPHYLAXIS
     Dosage: 1 DF QD
     Route: 048
     Dates: start: 20151221, end: 20160331
  2. LANSOPRAZOLE. [Suspect]
     Active Substance: LANSOPRAZOLE
     Indication: HIATUS HERNIA
     Dosage: 1 DF QD (IN THE MORNING)
     Route: 048
     Dates: start: 20131212
  3. LEVOTHYROXINE. [Suspect]
     Active Substance: LEVOTHYROXINE
     Indication: HYPOTHYROIDISM
     Dosage: 125 ?G, QD
     Route: 048
     Dates: start: 20131212
  4. SIMVASTATIN. [Suspect]
     Active Substance: SIMVASTATIN
     Indication: HYPERCHOLESTEROLAEMIA
     Dosage: 1 DF, QD (AT NIGHT)
     Route: 048
     Dates: start: 20140607

REACTIONS (9)
  - Hyperhidrosis [Recovered/Resolved]
  - Vomiting [Recovered/Resolved]
  - Anal incontinence [Recovered/Resolved]
  - Cold sweat [Recovered/Resolved]
  - Balance disorder [Recovered/Resolved]
  - Feeling cold [Recovered/Resolved]
  - Photosensitivity reaction [Recovered/Resolved]
  - Deafness [Recovered/Resolved]
  - Headache [Recovered/Resolved]

NARRATIVE: CASE EVENT DATE: 20151222
